FAERS Safety Report 8958141 (Version 1)
Quarter: 2012Q4

REPORT INFORMATION
  Report Type: 
  Country: DE (occurrence: DE)
  Receive Date: 20121211
  Receipt Date: 20121211
  Transmission Date: 20130627
  Serious: Yes (Death, Other)
  Sender: FDA-Public Use
  Company Number: DE-JNJFOC-20121201677

PATIENT

DRUGS (17)
  1. DOXORUBICIN [Suspect]
     Indication: LYMPHOMA AIDS RELATED
     Route: 042
  2. DOXORUBICIN [Suspect]
     Indication: LYMPHOMA AIDS RELATED
     Dosage: 4 courses for BEACOPP
     Route: 042
  3. BLEOMYCIN [Suspect]
     Indication: LYMPHOMA AIDS RELATED
     Dosage: 4 courses of BEACOPP
     Route: 065
  4. BLEOMYCIN [Suspect]
     Indication: LYMPHOMA AIDS RELATED
     Dosage: 2 courses ABVD
     Route: 065
  5. VINBLASTINE [Suspect]
     Indication: LYMPHOMA AIDS RELATED
     Route: 065
  6. DACARBAZINE [Suspect]
     Indication: LYMPHOMA AIDS RELATED
     Dosage: 2 courses
     Route: 065
  7. RADIATION THERAPY [Suspect]
     Indication: LYMPHOMA AIDS RELATED
     Dosage: 30 Gy (2 courses) of BEACOPP
     Route: 065
  8. RADIATION THERAPY [Suspect]
     Indication: LYMPHOMA AIDS RELATED
     Route: 065
  9. ETOPOSIDE [Suspect]
     Indication: LYMPHOMA AIDS RELATED
     Dosage: 4 courses of BEACOPP
     Route: 065
  10. CYCLOPHOSPHAMIDE [Suspect]
     Indication: LYMPHOMA AIDS RELATED
     Dosage: 4 courses of BEACOPP
     Route: 065
  11. VINCRISTINE [Suspect]
     Indication: LYMPHOMA AIDS RELATED
     Dosage: 4 courses of BEACOPP
     Route: 065
  12. PROCARBAZINE [Suspect]
     Indication: LYMPHOMA AIDS RELATED
     Dosage: 4 courses of BEACOPP
     Route: 065
  13. PREDNISONE [Suspect]
     Indication: LYMPHOMA AIDS RELATED
     Dosage: 4 courses of BEACOPP
     Route: 065
  14. GRANULOCYTE COLONY STIMULATING FACTOR [Suspect]
     Indication: CD4 LYMPHOCYTES DECREASED
     Route: 065
  15. ANTIRETROVIRALS (NOS) [Concomitant]
     Indication: HIV INFECTION
     Route: 065
  16. COTRIMOXAZOLE [Concomitant]
     Indication: PROPHYLAXIS
     Route: 065
  17. FLUCONAZOLE [Concomitant]
     Indication: PROPHYLAXIS
     Route: 065

REACTIONS (6)
  - Neutropenic sepsis [Fatal]
  - Toxicity to various agents [Unknown]
  - Bone marrow failure [Unknown]
  - Neuropathy peripheral [Unknown]
  - Haematotoxicity [Unknown]
  - Lymphoma AIDS related [Unknown]
